FAERS Safety Report 4937058-7 (Version None)
Quarter: 2006Q1

REPORT INFORMATION
  Report Type: 
  Country: None (occurrence: None)
  Receive Date: 20060309
  Receipt Date: 20060213
  Transmission Date: 20060701
  Serious: Yes (Hospitalization)
  Sender: FDA-Public Use
  Company Number: US-MERCK-0602USA04321

PATIENT
  Age: 63 Year
  Sex: Female
  Weight: 86 kg

DRUGS (4)
  1. VIOXX [Suspect]
     Indication: ARTHRALGIA
     Route: 048
     Dates: start: 19990629, end: 20020101
  2. VIOXX [Suspect]
     Route: 048
     Dates: start: 19990629, end: 20020101
  3. VIOXX [Suspect]
     Indication: PAIN IN EXTREMITY
     Route: 048
     Dates: start: 19990629, end: 20020101
  4. VIOXX [Suspect]
     Route: 048
     Dates: start: 19990629, end: 20020101

REACTIONS (7)
  - ANXIETY [None]
  - CHEST PAIN [None]
  - DEPRESSION [None]
  - DIZZINESS [None]
  - OSTEOARTHRITIS [None]
  - THROMBOPHLEBITIS [None]
  - THROMBOSIS [None]
